FAERS Safety Report 26051660 (Version 1)
Quarter: 2025Q4

REPORT INFORMATION
  Report Type: Spontaneous
  Country: EU (occurrence: EU)
  Receive Date: 20251117
  Receipt Date: 20251117
  Transmission Date: 20260118
  Serious: Yes (Death, Hospitalization)
  Sender: ACCORD
  Company Number: None

PATIENT
  Age: 71 Year
  Sex: Female
  Weight: 60 kg

DRUGS (1)
  1. CAPECITABINE [Suspect]
     Active Substance: CAPECITABINE
     Indication: Triple negative breast cancer
     Dosage: 2X PER DAY 1 PIECE
     Dates: start: 20240328

REACTIONS (7)
  - Stomatitis [Fatal]
  - Abdominal pain [Fatal]
  - Diarrhoea [Fatal]
  - Neutropenia [Fatal]
  - Gastrointestinal inflammation [Fatal]
  - Hypovolaemia [Fatal]
  - Multiple organ dysfunction syndrome [Fatal]
